FAERS Safety Report 16861331 (Version 1)
Quarter: 2019Q3

REPORT INFORMATION
  Report Type: Spontaneous
  Country: US (occurrence: US)
  Receive Date: 20190923
  Receipt Date: 20190923
  Transmission Date: 20191005
  Serious: Yes (Death)
  Sender: FDA-Public Use
  Company Number: None

PATIENT
  Age: 69 Year
  Sex: Male
  Weight: 77.11 kg

DRUGS (1)
  1. (KRATOM) KRAOMA.COM TRANQUIL KRAOMA [Suspect]
     Active Substance: HERBALS\MITRAGYNINE
     Indication: SUBSTANCE USE
     Dosage: AS SEEN ON PHOTO, POWDER MIXED WITH LIQUID??DURATION - ALMOST 2 YEARS
     Dates: start: 20180202, end: 20190408

REACTIONS (4)
  - Musculoskeletal disorder [None]
  - Cardiac arrest [None]
  - Headache [None]
  - Dysstasia [None]
